FAERS Safety Report 13402435 (Version 3)
Quarter: 2017Q3

REPORT INFORMATION
  Report Type: Report from Study
  Country: BR (occurrence: BR)
  Receive Date: 20170404
  Receipt Date: 20170717
  Transmission Date: 20171127
  Serious: Yes (Life-Threatening, Hospitalization)
  Sender: FDA-Public Use
  Company Number: PHHY2017BR049271

PATIENT
  Sex: Female
  Weight: 49 kg

DRUGS (2)
  1. EXJADE [Suspect]
     Active Substance: DEFERASIROX
     Indication: SICKLE CELL ANAEMIA
     Dosage: 1500 MG, QD (THREE DISPERSIBLE TABLETS)
     Route: 048
  2. HYDROXYUREA. [Concomitant]
     Active Substance: HYDROXYUREA
     Indication: PRODUCT USED FOR UNKNOWN INDICATION
     Route: 065

REACTIONS (8)
  - Coma [Recovered/Resolved]
  - Respiratory disorder [Unknown]
  - Maternal exposure during pregnancy [Unknown]
  - Renal disorder [Unknown]
  - Enteritis infectious [Unknown]
  - Weight decreased [Unknown]
  - Lung disorder [Unknown]
  - Drug administration error [Unknown]
